FAERS Safety Report 20212276 (Version 2)
Quarter: 2022Q1

REPORT INFORMATION
  Report Type: Report from Study
  Country: US (occurrence: US)
  Receive Date: 20211221
  Receipt Date: 20220125
  Transmission Date: 20220423
  Serious: Yes (Other)
  Sender: FDA-Public Use
  Company Number: US-ABBVIE-21K-163-4205003-00

PATIENT
  Sex: Male

DRUGS (1)
  1. HUMIRA [Suspect]
     Active Substance: ADALIMUMAB
     Indication: Psoriasis
     Dosage: CF
     Route: 058

REACTIONS (5)
  - Rotator cuff repair [Unknown]
  - Arthralgia [Recovering/Resolving]
  - Arthropathy [Recovering/Resolving]
  - Skin disorder [Recovering/Resolving]
  - Injection site bruising [Recovering/Resolving]
